FAERS Safety Report 5191894-3 (Version None)
Quarter: 2006Q4

REPORT INFORMATION
  Report Type: 
  Country: None (occurrence: None)
  Receive Date: 20061220
  Receipt Date: 20061207
  Transmission Date: 20070319
  Serious: Yes (Other)
  Sender: FDA-Public Use
  Company Number: 2006BI014127

PATIENT
  Sex: Female

DRUGS (2)
  1. AVONEX [Suspect]
     Indication: MULTIPLE SCLEROSIS
     Dates: start: 19980423, end: 20030429
  2. AVONEX [Suspect]
     Indication: MULTIPLE SCLEROSIS
     Dates: end: 20060201

REACTIONS (5)
  - BLINDNESS [None]
  - HEADACHE [None]
  - LOSS OF CONSCIOUSNESS [None]
  - MYOCARDIAL INFARCTION [None]
  - NARCOLEPSY [None]
